FAERS Safety Report 6722866-2 (Version None)
Quarter: 2010Q2

REPORT INFORMATION
  Report Type: 
  Country: None (occurrence: None)
  Receive Date: 20100512
  Receipt Date: 20100512
  Transmission Date: 20101027
  Serious: Yes (Other)
  Sender: FDA-Public Use
  Company Number: None

PATIENT
  Age: 77 Year
  Sex: Female

DRUGS (9)
  1. AMLODIPINE [Suspect]
     Indication: HYPERTENSION
     Dosage: 5MG ONCE DAILY PO
     Route: 048
     Dates: start: 20100310, end: 20100413
  2. DOXEPIN HCL [Concomitant]
  3. NIASPAN [Concomitant]
  4. DYAZIDE [Concomitant]
  5. ESTROGEN/METHYLTESTOSTERONE [Concomitant]
  6. PROMETRIUM [Concomitant]
  7. SOTALOL HCL [Concomitant]
  8. LUMIGAN [Concomitant]
  9. ASTEPRO [Concomitant]

REACTIONS (4)
  - EYE SWELLING [None]
  - FATIGUE [None]
  - HEADACHE [None]
  - SWELLING FACE [None]
